FAERS Safety Report 23404902 (Version 1)
Quarter: 2024Q1

REPORT INFORMATION
  Report Type: Spontaneous
  Country: US (occurrence: None)
  Receive Date: 20240112
  Receipt Date: 20240112
  Transmission Date: 20240409
  Serious: Yes (Death)
  Sender: FDA-Public Use
  Company Number: None

PATIENT
  Age: 73 Year
  Sex: Female

DRUGS (1)
  1. ONIVYDE [Suspect]
     Active Substance: IRINOTECAN HYDROCHLORIDE
     Indication: Pancreatic carcinoma
     Dosage: OTHER FREQUENCY : EVERY 14 DAYS;?
     Route: 042
     Dates: start: 20230710, end: 20231224

REACTIONS (1)
  - Death [None]

NARRATIVE: CASE EVENT DATE: 20231224
